FAERS Safety Report 6398741-2 (Version None)
Quarter: 2009Q4

REPORT INFORMATION
  Report Type: 
  Country: None (occurrence: None)
  Receive Date: 20091013
  Receipt Date: 20091006
  Transmission Date: 20100525
  Serious: Yes (Hospitalization)
  Sender: FDA-Public Use
  Company Number: PHHO2007DE13598

PATIENT
  Sex: Male
  Weight: 88 kg

DRUGS (3)
  1. RAD 666 RAD+TAB [Suspect]
     Indication: RENAL TRANSPLANT
     Dosage: 3 MG/DAILY
     Route: 048
     Dates: start: 20070809
  2. MYFORTIC [Suspect]
     Indication: RENAL TRANSPLANT
     Dosage: 1080 MG/DAILY
     Route: 048
     Dates: start: 20070809
  3. TACROLIMUS [Suspect]
     Indication: RENAL TRANSPLANT
     Dosage: 2 MG/DAILY
     Route: 048
     Dates: start: 20070809, end: 20070816

REACTIONS (2)
  - ESCHERICHIA INFECTION [None]
  - URINARY TRACT INFECTION [None]
